FAERS Safety Report 7589995-5 (Version None)
Quarter: 2011Q3

REPORT INFORMATION
  Report Type: 
  Country: None (occurrence: None)
  Receive Date: 20110705
  Receipt Date: 20110613
  Transmission Date: 20111222
  Serious: Yes (Hospitalization, Congenital Anomaly)
  Sender: FDA-Public Use
  Company Number: A0930656A

PATIENT
  Sex: Female
  Weight: 3.4 kg

DRUGS (3)
  1. PAXIL [Suspect]
     Indication: DEPRESSION
     Dosage: 20MG PER DAY
     Route: 064
  2. BRETHINE [Concomitant]
     Route: 064
     Dates: start: 19990629
  3. UNKNOWN MEDICATION [Concomitant]

REACTIONS (4)
  - EXPOSURE DURING BREAST FEEDING [None]
  - SUPRAVENTRICULAR TACHYCARDIA [None]
  - MATERNAL EXPOSURE DURING PREGNANCY [None]
  - ATRIAL SEPTAL DEFECT [None]
